FAERS Safety Report 5736000-9 (Version None)
Quarter: 2008Q2

REPORT INFORMATION
  Report Type: 
  Country: None (occurrence: None)
  Receive Date: 20080509
  Receipt Date: 20080429
  Transmission Date: 20081010
  Serious: Yes (Life-Threatening, Hospitalization)
  Sender: FDA-Public Use
  Company Number: MEDI-0006571

PATIENT
  Age: 1 Month
  Sex: Female

DRUGS (1)
  1. SYNAGIS [Suspect]
     Indication: HEART DISEASE CONGENITAL
     Dosage: 15 MG/KG, INTRAMUSCULAR
     Route: 030
     Dates: start: 20080113, end: 20080113

REACTIONS (3)
  - DRUG INEFFECTIVE [None]
  - PNEUMONIA RESPIRATORY SYNCYTIAL VIRAL [None]
  - WHEEZING [None]
